FAERS Safety Report 19181394 (Version 2)
Quarter: 2021Q2

REPORT INFORMATION
  Report Type: Spontaneous
  Country: PL (occurrence: PL)
  Receive Date: 20210426
  Receipt Date: 20210517
  Transmission Date: 20210717
  Serious: Yes (Hospitalization, Other)
  Sender: FDA-Public Use
  Company Number: PL-NOVOPROD-804334

PATIENT
  Sex: Male
  Weight: 3.6 kg

DRUGS (6)
  1. NOVORAPID [Suspect]
     Active Substance: INSULIN ASPART
     Indication: TYPE 1 DIABETES MELLITUS
     Dosage: DAILY DOSE OF 33?37 UNITS DURING 1ST TRIMESTER
     Route: 064
  2. DUPHASTON [Concomitant]
     Active Substance: DYDROGESTERONE
     Dosage: DAILY 1 TABLET
  3. NOVORAPID [Suspect]
     Active Substance: INSULIN ASPART
     Dosage: 116 IU, QD (3RD TRIMESTER)
     Route: 064
  4. LEVEMIR PENFILL [Suspect]
     Active Substance: INSULIN DETEMIR
     Dosage: 73 IU, QD
     Route: 064
  5. LEVEMIR PENFILL [Suspect]
     Active Substance: INSULIN DETEMIR
     Indication: TYPE 1 DIABETES MELLITUS
     Dosage: 16 IU, QD
     Route: 064
  6. ACARD [ACETYLSALICYLIC ACID] [Concomitant]
     Active Substance: ASPIRIN
     Indication: PROPHYLAXIS
     Dosage: UNK
     Route: 065

REACTIONS (4)
  - Hypoglycaemia neonatal [Unknown]
  - Jaundice neonatal [Unknown]
  - Foetal exposure during pregnancy [Recovered/Resolved]
  - Premature baby [Recovered/Resolved]

NARRATIVE: CASE EVENT DATE: 20201203
